FAERS Safety Report 15241495 (Version 1)
Quarter: 2018Q3

REPORT INFORMATION
  Report Type: Spontaneous
  Country: US (occurrence: US)
  Receive Date: 20180712
  Receipt Date: 20180712
  Transmission Date: 20181010
  Serious: Yes (Death, Hospitalization)
  Sender: FDA-Public Use
  Company Number: None

PATIENT
  Age: 83 Year
  Sex: Female
  Weight: 67.2 kg

DRUGS (1)
  1. WARFARIN [Suspect]
     Active Substance: WARFARIN
     Indication: ATRIAL FIBRILLATION
     Dosage: ?          OTHER FREQUENCY:MON ? FRI;?
     Route: 048

REACTIONS (5)
  - Cerebral haemorrhage [None]
  - Unresponsive to stimuli [None]
  - Fall [None]
  - Subdural haematoma [None]
  - Brain herniation [None]

NARRATIVE: CASE EVENT DATE: 20180627
